FAERS Safety Report 5266937-9 (Version None)
Quarter: 2007Q1

REPORT INFORMATION
  Report Type: 
  Country: None (occurrence: None)
  Receive Date: 20070312
  Receipt Date: 20070227
  Transmission Date: 20070707
  Serious: Yes (Other)
  Sender: FDA-Public Use
  Company Number: B0457194A

PATIENT
  Age: 40 Year
  Sex: Female

DRUGS (11)
  1. BUPROPION HYDROCHLORIDE [Suspect]
     Indication: MAJOR DEPRESSION
     Dosage: SEE DOSAGE TEXT/ORAL
     Route: 048
  2. LEVOTHYROXINE SODIUM [Concomitant]
  3. LORATADINE [Concomitant]
  4. MONTELUKAST SODIUM [Concomitant]
  5. RANITIDINE HYDROCHLORIDE [Concomitant]
  6. RIBOFLAVINE [Concomitant]
  7. FIORICET [Concomitant]
  8. GABAPENTIN [Concomitant]
  9. TRAZODONE HCL [Concomitant]
  10. IBUPROFEN [Concomitant]
  11. BUTALBITAL [Concomitant]

REACTIONS (2)
  - FORMICATION [None]
  - HALLUCINATION, TACTILE [None]
